FAERS Safety Report 23157787 (Version 1)
Quarter: 2023Q4

REPORT INFORMATION
  Report Type: Spontaneous
  Country: FR (occurrence: FR)
  Receive Date: 20231108
  Receipt Date: 20231108
  Transmission Date: 20240109
  Serious: Yes (Death, Other)
  Sender: FDA-Public Use
  Company Number: FR-JNJFOC-20231073231

PATIENT
  Age: 68 Year
  Sex: Male

DRUGS (5)
  1. DEXAMETHASONE [Suspect]
     Active Substance: DEXAMETHASONE
     Indication: Plasma cell myeloma
     Dosage: 3 WEEK(S)/CYCLE
     Route: 065
  2. DEXAMETHASONE [Suspect]
     Active Substance: DEXAMETHASONE
     Dosage: 4 WEEK(S)/CYCLE
     Route: 065
     Dates: end: 20191223
  3. BENDAMUSTINE [Suspect]
     Active Substance: BENDAMUSTINE
     Indication: Plasma cell myeloma
     Dosage: 2 WEEK(S)/CYCLE
     Route: 065
     Dates: end: 20191223
  4. VELCADE [Suspect]
     Active Substance: BORTEZOMIB
     Indication: Plasma cell myeloma
     Dosage: 4 WEEK(S)/CYCLE; LINE NUMBER: 4
     Route: 065
     Dates: end: 20191223
  5. IXAZOMIB [Suspect]
     Active Substance: IXAZOMIB
     Indication: Plasma cell myeloma
     Dosage: MAINTENANCE: 3 WEEK(S)/CYCLE
     Route: 065
     Dates: end: 20191223

REACTIONS (4)
  - Pneumonia [Fatal]
  - Plasma cell myeloma [Unknown]
  - Off label use [Unknown]
  - Intentional product use issue [Unknown]
